FAERS Safety Report 4785394-X (Version None)
Quarter: 2005Q3

REPORT INFORMATION
  Report Type: 
  Country: None (occurrence: None)
  Receive Date: 20050929
  Receipt Date: 20050921
  Transmission Date: 20060218
  Serious: Yes (Other)
  Sender: FDA-Public Use
  Company Number: 2005118880

PATIENT
  Age: 32 Year
  Sex: Female
  Weight: 61 kg

DRUGS (2)
  1. CABERGOLINE [Suspect]
     Indication: HYPERPROLACTINAEMIA
     Dosage: SEE IMAGE
     Route: 048
     Dates: start: 20011101
  2. CABERGOLINE [Suspect]
     Indication: HYPERPROLACTINAEMIA
     Dosage: SEE IMAGE
     Route: 048
     Dates: start: 20050301

REACTIONS (1)
  - PROLACTIN-PRODUCING PITUITARY TUMOUR [None]
